FAERS Safety Report 15762972 (Version 3)
Quarter: 2019Q3

REPORT INFORMATION
  Report Type: Report from Study
  Country: US (occurrence: US)
  Receive Date: 20181226
  Receipt Date: 20190722
  Transmission Date: 20191004
  Serious: Yes (Death, Hospitalization)
  Sender: FDA-Public Use
  Company Number: US-ACTELION-A-NJ2018-184099

PATIENT
  Sex: Male
  Weight: 72.56 kg

DRUGS (3)
  1. OPSUMIT [Suspect]
     Active Substance: MACITENTAN
     Indication: PULMONARY HYPERTENSION
     Dosage: 10 MG, QD
     Route: 048
     Dates: end: 20190106
  2. AMLODIPINE [Concomitant]
     Active Substance: AMLODIPINE BESYLATE
  3. SILDENAFIL. [Concomitant]
     Active Substance: SILDENAFIL
     Dosage: 20 UNK, TID

REACTIONS (9)
  - Interstitial lung disease [Unknown]
  - Pneumonia [Unknown]
  - Sepsis [Unknown]
  - Pulmonary hypertension [Unknown]
  - Scleroderma [Unknown]
  - Pulmonary veno-occlusive disease [Unknown]
  - Respiratory failure [Fatal]
  - Diabetic ketoacidosis [Unknown]
  - Pulmonary capillary haemangiomatosis [Unknown]
